FAERS Safety Report 24291703 (Version 1)
Quarter: 2024Q3

REPORT INFORMATION
  Report Type: Spontaneous
  Country: GB (occurrence: GB)
  Receive Date: 20240906
  Receipt Date: 20240906
  Transmission Date: 20241016
  Serious: Yes (Life-Threatening, Other)
  Sender: TEVA
  Company Number: GB-MHRA-EMIS-12718-a0c1e59c-7494-42b5-abd9-7364aac7b768

PATIENT
  Age: 56 Year
  Sex: Female
  Weight: 81 kg

DRUGS (6)
  1. LISINOPRIL [Suspect]
     Active Substance: LISINOPRIL
     Route: 065
     Dates: end: 20240827
  2. LISINOPRIL [Concomitant]
     Active Substance: LISINOPRIL
     Dosage: - WITH A BP CHECK + BT AFTER 2 WEEKS PLEASE, DURATION: 25 DAYS ,
     Dates: start: 20240726, end: 20240820
  3. EUMOVATE [Concomitant]
     Active Substance: CLOBETASONE BUTYRATE
     Dosage: APPLY 1-2 TIMES/DAY
     Dates: start: 20240722
  4. LERCANIDIPINE [Concomitant]
     Active Substance: LERCANIDIPINE
     Indication: Essential hypertension
     Dates: start: 20240828
  5. BETAMETHASONE [Concomitant]
     Active Substance: BETAMETHASONE
     Indication: Eczema
     Dosage: APPLY THINLY TWICE A DAY
     Dates: start: 20240729
  6. ALBUTEROL [Concomitant]
     Active Substance: ALBUTEROL
     Indication: Cough
     Dosage: ONE OR TWO PUFFS TO BE INHALED UP TO FOUR TIMES A DAY,
     Route: 055
     Dates: start: 20240626, end: 20240805

REACTIONS (1)
  - Angioedema [Recovered/Resolved]

NARRATIVE: CASE EVENT DATE: 20240824
